FAERS Safety Report 5301888-2 (Version None)
Quarter: 2007Q2

REPORT INFORMATION
  Report Type: 
  Country: None (occurrence: None)
  Receive Date: 20070419
  Receipt Date: 20070411
  Transmission Date: 20071010
  Serious: Yes (Hospitalization)
  Sender: FDA-Public Use
  Company Number: 2007AP01817

PATIENT
  Age: 26912 Day
  Sex: Female
  Weight: 34 kg

DRUGS (12)
  1. IRESSA [Suspect]
     Indication: LUNG ADENOCARCINOMA
     Route: 048
     Dates: start: 20070109, end: 20070318
  2. LOXONIN [Concomitant]
     Indication: CANCER PAIN
     Route: 048
     Dates: start: 20061201, end: 20070317
  3. NOVAMIN [Concomitant]
     Indication: NAUSEA
     Route: 048
     Dates: start: 20061201, end: 20070326
  4. LIPITOR [Concomitant]
     Indication: HYPERLIPIDAEMIA
     Dates: start: 20061201, end: 20070326
  5. PROMAC [Concomitant]
     Indication: GASTRITIS
     Route: 048
     Dates: start: 20061201, end: 20070326
  6. MEXITIL [Concomitant]
     Indication: HYPOAESTHESIA
     Route: 048
     Dates: start: 20061201
  7. INDERAL [Concomitant]
     Indication: SINUS TACHYCARDIA
     Route: 048
     Dates: start: 20061201
  8. PAXIL [Concomitant]
     Indication: DEPRESSION
     Route: 048
     Dates: start: 20061201
  9. PAXIL [Concomitant]
     Indication: PAIN
     Route: 048
     Dates: start: 20061201
  10. DUROTEP [Concomitant]
     Indication: CANCER PAIN
     Dates: start: 20070117
  11. CARBOPLATIN [Concomitant]
     Dates: start: 20061219
  12. DOCETAXEL [Concomitant]
     Dates: start: 20061219

REACTIONS (3)
  - INTERSTITIAL LUNG DISEASE [None]
  - LARGE INTESTINAL ULCER [None]
  - LIVER DISORDER [None]
